FAERS Safety Report 9685516 (Version 1)
Quarter: 2013Q4

REPORT INFORMATION
  Report Type: Spontaneous
  Country: US (occurrence: None)
  Receive Date: 20131112
  Receipt Date: 20131112
  Transmission Date: 20140711
  Serious: Yes (Hospitalization)
  Sender: FDA-Public Use
  Company Number: None

PATIENT
  Age: 75 Year
  Sex: Male
  Weight: 105 kg

DRUGS (1)
  1. DOCITABINE 20 MG/M2 [Suspect]
     Indication: ACUTE MYELOID LEUKAEMIA
     Dosage: 20 MG/M2 QDX10; 28 DAY CYCLE IV
     Route: 042

REACTIONS (3)
  - Febrile neutropenia [None]
  - Haemoglobin decreased [None]
  - White blood cell count decreased [None]
